FAERS Safety Report 25925514 (Version 1)
Quarter: 2025Q4

REPORT INFORMATION
  Report Type: Spontaneous
  Country: US (occurrence: None)
  Receive Date: 20251014
  Receipt Date: 20251014
  Transmission Date: 20260117
  Serious: No
  Sender: FDA-CTU
  Company Number: None

PATIENT
  Sex: Female
  Weight: 65.7 kg

DRUGS (5)
  1. CETIRIZINE HYDROCHLORIDE [Suspect]
     Active Substance: CETIRIZINE HYDROCHLORIDE
     Indication: Mechanical urticaria
     Dosage: FREQUENCY : DAILY;?
     Route: 048
     Dates: start: 20130123, end: 20250707
  2. ZINC [Concomitant]
     Active Substance: ZINC
  3. ancestral supplements grass fed [Concomitant]
  4. protein protein poder by orgain organic [Concomitant]
  5. Doctor^s Best High Absorption Lusinate Glycinate [Concomitant]

REACTIONS (3)
  - Pruritus [None]
  - Withdrawal syndrome [None]
  - Incorrect product administration duration [None]
